FAERS Safety Report 21394280 (Version 1)
Quarter: 2022Q3

REPORT INFORMATION
  Report Type: Spontaneous
  Country: DE (occurrence: DE)
  Receive Date: 20220930
  Receipt Date: 20220930
  Transmission Date: 20221027
  Serious: Yes (Hospitalization, Other)
  Sender: FDA-Public Use
  Company Number: DE-ADRED-04034-01

PATIENT
  Age: 69 Year
  Sex: Male

DRUGS (19)
  1. METOPROLOL [Suspect]
     Active Substance: METOPROLOL
     Indication: Product used for unknown indication
     Dosage: 47.5 MG, 0.5-0-0.5-0
     Route: 065
  2. DOXAZOSIN [Suspect]
     Active Substance: DOXAZOSIN MESYLATE
     Indication: Product used for unknown indication
     Dosage: 2 MILLIGRAM DAILY; STRENGTH: 4 MG, 0-0-0.5-0,
     Route: 065
  3. OXALIPLATIN [Suspect]
     Active Substance: OXALIPLATIN
     Indication: Product used for unknown indication
     Dosage: ACCORDING TO SCHEME
     Route: 065
  4. LEUCOVORIN [Suspect]
     Active Substance: LEUCOVORIN
     Indication: Product used for unknown indication
     Dosage: ACCORDING TO SCHEME
     Route: 065
  5. FLUOROURACIL [Suspect]
     Active Substance: FLUOROURACIL
     Indication: Product used for unknown indication
     Dosage: ACCORDING TO SCHEME
     Route: 065
  6. IRINOTECAN [Suspect]
     Active Substance: IRINOTECAN
     Indication: Product used for unknown indication
     Dosage: ACCORDING TO SCHEME
     Route: 065
  7. INSULIN LISPRO [Concomitant]
     Active Substance: INSULIN LISPRO
     Indication: Product used for unknown indication
     Dosage: NK IE, ACCORDING TO SCHEME; LIPROLOG 100 UNITS/ML SOLUTION FOR INJECTION, LIPROLOG 100
  8. MCP [Concomitant]
     Active Substance: METOCLOPRAMIDE HYDROCHLORIDE
     Indication: Product used for unknown indication
     Dosage: 10 MG, 4X
  9. LEVEMIR [Concomitant]
     Active Substance: INSULIN DETEMIR
     Indication: Product used for unknown indication
     Dosage: 18 IU (INTERNATIONAL UNIT) DAILY; NK IU, 0-0-18-0
  10. BECLOMETHASONE DIPROPIONATE [Concomitant]
     Active Substance: BECLOMETHASONE DIPROPIONATE
     Indication: Product used for unknown indication
     Dosage: .05 MILLIGRAM DAILY; 0.05 MG, 1-0-0-0
  11. OLODATEROL HYDROCHLORIDE\TIOTROPIUM BROMIDE MONOHYDRATE [Concomitant]
     Active Substance: OLODATEROL HYDROCHLORIDE\TIOTROPIUM BROMIDE MONOHYDRATE
     Indication: Product used for unknown indication
     Dosage: 1 DOSAGE FORMS DAILY; 2|5 MG, 1-0-0-0
  12. RAMIPRIL [Concomitant]
     Active Substance: RAMIPRIL
     Indication: Product used for unknown indication
     Dosage: 2.5 MILLIGRAM DAILY; 2.5 MG, 0-0-1-0, STRENGTH : 2. 5 MG
  13. SIMVASTATIN [Concomitant]
     Active Substance: SIMVASTATIN
     Indication: Product used for unknown indication
     Dosage: 20 MILLIGRAM DAILY; 20 MG, 0-0-1-0, STRENGTH : 20 MG
  14. LOPERAMIDE [Concomitant]
     Active Substance: LOPERAMIDE
     Indication: Product used for unknown indication
     Dosage: 2 MG, 8X
  15. FOLACID [Concomitant]
     Indication: Product used for unknown indication
     Dosage: 5 MILLIGRAM DAILY; 5 MG, 1-0-0-0
  16. PANTOPRAZOLE SODIUM [Concomitant]
     Active Substance: PANTOPRAZOLE SODIUM
     Indication: Product used for unknown indication
     Dosage: 40 MILLIGRAM DAILY; 40 MG, 1-0-0-0, STRENGTH : 40 MG
  17. METAMIZOL [Concomitant]
     Active Substance: METAMIZOLE SODIUM
     Indication: Product used for unknown indication
     Dosage: 500 MG, 6X
  18. ASPIRIN [Concomitant]
     Active Substance: ASPIRIN
     Indication: Product used for unknown indication
     Dosage: 100 MILLIGRAM DAILY; 100 MG, 0-1-0-0
  19. ONDANSETRON [Concomitant]
     Active Substance: ONDANSETRON
     Indication: Product used for unknown indication
     Dosage: 8 MG, 3X

REACTIONS (5)
  - Circulatory collapse [Unknown]
  - Syncope [Unknown]
  - Dehydration [Unknown]
  - Diarrhoea [Unknown]
  - Hypotension [Unknown]

NARRATIVE: CASE EVENT DATE: 20190712
